FAERS Safety Report 23063211 (Version 1)
Quarter: 2023Q4

REPORT INFORMATION
  Report Type: Spontaneous
  Country: JP (occurrence: JP)
  Receive Date: 20231013
  Receipt Date: 20231013
  Transmission Date: 20240110
  Serious: Yes (Hospitalization)
  Sender: FDA-Public Use
  Company Number: JP-MH-2023M1088448AA

PATIENT
  Age: 75 Year
  Sex: Male

DRUGS (9)
  1. CARBOPLATIN [Suspect]
     Active Substance: CARBOPLATIN
     Indication: Squamous cell carcinoma of lung
     Dosage: AUC?2, 160MG/BODY, QW,DAY1, 8,15,22,36
     Route: 042
     Dates: start: 20230713, end: 20230817
  2. PACLITAXEL [Concomitant]
     Active Substance: PACLITAXEL
     Indication: Squamous cell carcinoma
     Dosage: 40 MILLIGRAM/SQ. METER
     Route: 042
     Dates: start: 20230713
  3. PANTETHINE [Concomitant]
     Active Substance: PANTETHINE
     Indication: Product used for unknown indication
     Dosage: 1.5 GRAM, 3X
     Route: 048
     Dates: start: 20230817
  4. MAGNESIUM OXIDE [Concomitant]
     Active Substance: MAGNESIUM OXIDE
     Indication: Product used for unknown indication
     Dosage: 990 MILLIGRAM, 3X
     Route: 048
     Dates: start: 20230817
  5. POLAPREZINC [Concomitant]
     Active Substance: POLAPREZINC
     Indication: Product used for unknown indication
     Dosage: 150 MILLIGRAM, 2X
     Route: 048
     Dates: start: 20230817
  6. DAYVIGO [Concomitant]
     Active Substance: LEMBOREXANT
     Indication: Product used for unknown indication
     Dosage: 5 MILLIGRAM, QD
     Route: 048
     Dates: start: 20230817
  7. CLOBETASOL [Concomitant]
     Active Substance: CLOBETASOL
     Indication: Product used for unknown indication
     Dosage: 1-2 TIMES A DAY, APPLY TO THE CHEST AND BACK
     Route: 061
     Dates: start: 20230817
  8. CLOTIAZEPAM [Concomitant]
     Active Substance: CLOTIAZEPAM
     Indication: Product used for unknown indication
     Dosage: UNK UNK, PRN
     Route: 048
     Dates: start: 20230817
  9. Azunol [Concomitant]
     Indication: Product used for unknown indication
     Dosage: SEVERAL TIMES A DAY
     Dates: start: 20230817

REACTIONS (1)
  - Anaphylactic shock [Recovering/Resolving]

NARRATIVE: CASE EVENT DATE: 20230817
